FAERS Safety Report 11219603 (Version 1)
Quarter: 2015Q2

REPORT INFORMATION
  Report Type: Spontaneous
  Country: BR (occurrence: BR)
  Receive Date: 20150625
  Receipt Date: 20150625
  Transmission Date: 20150821
  Serious: Yes (Hospitalization, Other)
  Sender: FDA-Public Use
  Company Number: BR-ASTRAZENECA-2015SE61110

PATIENT
  Age: 45 Year
  Sex: Female

DRUGS (6)
  1. SEROQUEL [Suspect]
     Active Substance: QUETIAPINE FUMARATE
     Indication: SCHIZOPHRENIA
     Dosage: DAILY
     Route: 048
     Dates: start: 2006
  2. ZYPREXA [Suspect]
     Active Substance: OLANZAPINE
     Indication: SCHIZOPHRENIA
     Dosage: DAILY
     Route: 065
     Dates: start: 2006
  3. RISPERIDONE. [Suspect]
     Active Substance: RISPERIDONE
     Indication: PSYCHOTIC DISORDER
     Dosage: DAILY
     Route: 065
     Dates: start: 2006
  4. ZYPREXA [Suspect]
     Active Substance: OLANZAPINE
     Indication: SOMATOFORM DISORDER
     Dosage: DAILY
     Route: 065
     Dates: start: 2006
  5. ZYPREXA [Suspect]
     Active Substance: OLANZAPINE
     Indication: SOMATOFORM DISORDER
     Dosage: OLANZAPINE; DAILY
     Route: 065
     Dates: start: 2006
  6. ZYPREXA [Suspect]
     Active Substance: OLANZAPINE
     Indication: SCHIZOPHRENIA
     Dosage: OLANZAPINE; DAILY
     Route: 065
     Dates: start: 2006

REACTIONS (3)
  - Mental disorder [Unknown]
  - Aggression [Unknown]
  - Drug dose omission [Unknown]

NARRATIVE: CASE EVENT DATE: 2014
